FAERS Safety Report 5406263-8 (Version None)
Quarter: 2007Q3

REPORT INFORMATION
  Report Type: 
  Country: None (occurrence: None)
  Receive Date: 20070806
  Receipt Date: 20070727
  Transmission Date: 20080115
  Serious: Yes (Other)
  Sender: FDA-Public Use
  Company Number: AT-JNJFOC-20070702875

PATIENT
  Age: 10 Decade
  Sex: Female

DRUGS (3)
  1. GALANTAMINE HYDROBROMIDE [Suspect]
     Indication: DEMENTIA ALZHEIMER'S TYPE
     Route: 048
  2. EUTHYROX [Concomitant]
     Route: 048
  3. ALLOPURINOL [Concomitant]
     Route: 048

REACTIONS (2)
  - CONCUSSION [None]
  - FALL [None]
